FAERS Safety Report 12423662 (Version 1)
Quarter: 2016Q2

REPORT INFORMATION
  Report Type: Spontaneous
  Country: US (occurrence: None)
  Receive Date: 20160531
  Receipt Date: 20160531
  Transmission Date: 20160815
  Serious: Yes (Disabling)
  Sender: FDA-Public Use
  Company Number: None

PATIENT
  Age: 54 Year
  Sex: Male
  Weight: 83.92 kg

DRUGS (1)
  1. LEVOFLOAXIN, 750 MG [Suspect]
     Active Substance: LEVOFLOXACIN
     Indication: SIALOADENITIS
     Dosage: 7 TABLETS ONCE A DAY
     Route: 048
     Dates: start: 20160524, end: 20160526

REACTIONS (3)
  - Bacterial infection [None]
  - Gait disturbance [None]
  - Pain in extremity [None]

NARRATIVE: CASE EVENT DATE: 20160527
